FAERS Safety Report 6300545-3 (Version None)
Quarter: 2009Q3

REPORT INFORMATION
  Report Type: 
  Country: None (occurrence: None)
  Receive Date: 20090806
  Receipt Date: 20090415
  Transmission Date: 20100115
  Serious: No
  Sender: FDA-Public Use
  Company Number: US-ABBOTT-09P-163-0568578-00

PATIENT
  Sex: Female

DRUGS (7)
  1. DEPAKOTE ER [Suspect]
     Indication: CONVULSION
     Route: 048
     Dates: start: 19910101
  2. DEPAKOTE ER [Suspect]
     Indication: BIPOLAR DISORDER
  3. DOXYCYCLINE [Suspect]
     Indication: BRONCHITIS
  4. DOXYCYCLINE [Suspect]
     Indication: PNEUMONIA
     Dates: start: 20090406
  5. ADDERALL 10 [Concomitant]
     Indication: ATTENTION DEFICIT/HYPERACTIVITY DISORDER
  6. ADDERALL 10 [Concomitant]
  7. PROVIGIL [Concomitant]
     Indication: DRUG USE FOR UNKNOWN INDICATION

REACTIONS (4)
  - BRONCHITIS [None]
  - PARAESTHESIA ORAL [None]
  - PNEUMONIA [None]
  - SWOLLEN TONGUE [None]
